FAERS Safety Report 7830503-9 (Version None)
Quarter: 2011Q4

REPORT INFORMATION
  Report Type: 
  Country: None (occurrence: None)
  Receive Date: 20111021
  Receipt Date: 20111013
  Transmission Date: 20120403
  Serious: Yes (Other)
  Sender: FDA-Public Use
  Company Number: US-RB-028823-11

PATIENT
  Age: 20 Year
  Sex: Male

DRUGS (1)
  1. MUCINEX DM [Suspect]
     Indication: UPPER RESPIRATORY TRACT INFECTION
     Dosage: 1 TABLET TOTAL
     Route: 048
     Dates: start: 20111008

REACTIONS (8)
  - BLOOD PRESSURE INCREASED [None]
  - PANIC ATTACK [None]
  - ANXIETY [None]
  - FEELING HOT [None]
  - FEAR [None]
  - TREMOR [None]
  - HYPERHIDROSIS [None]
  - DISORIENTATION [None]
